FAERS Safety Report 4273169-X (Version None)
Quarter: 2004Q1

REPORT INFORMATION
  Report Type: 
  Country: None (occurrence: None)
  Receive Date: 20040116
  Receipt Date: 20020725
  Transmission Date: 20041129
  Serious: No
  Sender: FDA-Public Use
  Company Number: WAES 0207FRA00060M

PATIENT
  Sex: Female

DRUGS (11)
  1. BROMAZEPAM [Suspect]
  2. DIDANOSINE [Suspect]
     Indication: HIV INFECTION
     Route: 048
  3. FLUNITRAZEPAM [Suspect]
  4. CRIXIVAN [Suspect]
     Indication: HIV INFECTION
     Route: 048
     Dates: start: 19970801, end: 19970801
  5. LAMIVUDINE [Suspect]
     Indication: HIV INFECTION
     Route: 048
  6. LAMIVUDINE [Suspect]
     Indication: PROPHYLAXIS AGAINST HIV INFECTION
     Route: 048
  7. NEVIRAPINE [Suspect]
     Indication: HIV INFECTION
     Route: 048
  8. SAQUINAVIR MESYLATE [Suspect]
     Indication: HIV INFECTION
     Route: 048
  9. STAVUDINE [Suspect]
     Indication: HIV INFECTION
     Route: 048
  10. ZIDOVUDINE [Suspect]
     Indication: HIV INFECTION
     Route: 041
  11. ZIDOVUDINE [Suspect]
     Indication: PROPHYLAXIS AGAINST HIV INFECTION
     Route: 048

REACTIONS (4)
  - CYTOMEGALOVIRUS INFECTION [None]
  - DRUG EXPOSURE DURING PREGNANCY [None]
  - MATERNAL DRUGS AFFECTING FOETUS [None]
  - PREGNANCY [None]
